FAERS Safety Report 12357366 (Version 1)
Quarter: 2016Q2

REPORT INFORMATION
  Report Type: Spontaneous
  Country: US (occurrence: US)
  Receive Date: 20160511
  Receipt Date: 20160511
  Transmission Date: 20160815
  Serious: No
  Sender: FDA-Public Use
  Company Number: US-TEVA-658363USA

PATIENT
  Age: 35 Year
  Sex: Female

DRUGS (1)
  1. COPAXONE [Suspect]
     Active Substance: GLATIRAMER ACETATE
     Indication: MULTIPLE SCLEROSIS
     Route: 058

REACTIONS (5)
  - Palpitations [Unknown]
  - Anxiety [Unknown]
  - Flushing [Unknown]
  - Immediate post-injection reaction [Unknown]
  - Chest pain [Unknown]

NARRATIVE: CASE EVENT DATE: 20160501
